FAERS Safety Report 4391927-8 (Version None)
Quarter: 2004Q3

REPORT INFORMATION
  Report Type: 
  Country: None (occurrence: None)
  Receive Date: 20040701
  Receipt Date: 20040615
  Transmission Date: 20050211
  Serious: Yes (Other)
  Sender: FDA-Public Use
  Company Number: USA040670177

PATIENT
  Age: 64 Year
  Sex: Female
  Weight: 62 kg

DRUGS (2)
  1. HUMALOG [Suspect]
     Indication: DIABETES MELLITUS
  2. HUMULIN N [Suspect]
     Indication: DIABETES MELLITUS
     Dosage: 12 U DAY

REACTIONS (2)
  - BLOOD GLUCOSE INCREASED [None]
  - DIABETIC RETINOPATHY [None]
